FAERS Safety Report 8276248-5 (Version None)
Quarter: 2012Q2

REPORT INFORMATION
  Report Type: 
  Country: None (occurrence: None)
  Receive Date: 20120412
  Receipt Date: 20120402
  Transmission Date: 20120825
  Serious: Yes (Hospitalization)
  Sender: FDA-Public Use
  Company Number: PHHO2012HU005260

PATIENT
  Sex: Male
  Weight: 83.3 kg

DRUGS (12)
  1. ONGLYZA [Concomitant]
  2. RILMENIDINE [Concomitant]
     Dosage: 1 MG, UNK
  3. AMLODIPINE [Concomitant]
     Dosage: 5 MG, UNK
  4. BIGUANIDES [Concomitant]
  5. TENAXUM [Concomitant]
     Dosage: 1 MG, UNK
  6. ESIDRIX [Suspect]
     Indication: CARDIOVASCULAR DISORDER
     Dosage: DOUBLE BLIND
     Route: 048
  7. ATORVASTATIN [Concomitant]
     Dosage: UNK
  8. PERINDOPRIL ERBUMINE [Concomitant]
     Dosage: 20 MG, UNK
  9. ALISKIREN [Suspect]
     Indication: CARDIOVASCULAR DISORDER
     Dosage: UNK
     Route: 048
  10. ANTIHYPERTENSIVE DRUGS [Concomitant]
     Dosage: 8 MG, UNK
  11. ALISKIREN [Suspect]
     Dosage: DOUBLE BLIND
     Route: 048
  12. BISOPROLOL FUMARATE [Concomitant]

REACTIONS (1)
  - BASAL CELL CARCINOMA [None]
